FAERS Safety Report 9070727 (Version 1)
Quarter: 2013Q1

REPORT INFORMATION
  Report Type: Spontaneous
  Country: US (occurrence: US)
  Receive Date: 20130206
  Receipt Date: 20130206
  Transmission Date: 20140127
  Serious: No
  Sender: FDA-Public Use
  Company Number: US-ALLERGAN-1204665US

PATIENT
  Sex: Female

DRUGS (4)
  1. RESTASIS? [Suspect]
     Indication: DRY EYE
     Dosage: 1 GTT, BID
     Route: 047
     Dates: start: 20120206
  2. RESTASIS? [Suspect]
     Dosage: 1 GTT, BID
     Route: 047
     Dates: start: 20120227
  3. LOTEMAX [Concomitant]
     Indication: DRY EYE
     Dosage: 1 UNK, UNK
     Route: 047
     Dates: start: 20120206, end: 20120211
  4. LOTEMAX [Concomitant]
     Dosage: 1 GTT, UNK
     Route: 047
     Dates: start: 20120223

REACTIONS (2)
  - Ocular hyperaemia [Recovered/Resolved]
  - Eye irritation [Recovered/Resolved]
